FAERS Safety Report 13596390 (Version 1)
Quarter: 2017Q2

REPORT INFORMATION
  Report Type: Spontaneous
  Country: US (occurrence: US)
  Receive Date: 20170531
  Receipt Date: 20170531
  Transmission Date: 20170830
  Serious: Yes (Hospitalization)
  Sender: FDA-Public Use
  Company Number: US-SHIRE-US201711345

PATIENT
  Age: 14 Year
  Sex: Male

DRUGS (11)
  1. ARIPRAZOLE [Concomitant]
     Active Substance: ARIPIPRAZOLE
     Dosage: 5 MG, 1X/DAY:QD
     Route: 048
  2. ARIPRAZOLE [Concomitant]
     Active Substance: ARIPIPRAZOLE
     Indication: AGGRESSION
     Dosage: 10 MG, 1X/DAY:QD
     Route: 048
  3. ARIPRAZOLE [Concomitant]
     Active Substance: ARIPIPRAZOLE
     Dosage: 5 MG, 1X/DAY:QD
     Route: 048
  4. 503 (GUANFACINE HYDROCHLORIDE) [Suspect]
     Active Substance: GUANFACINE HYDROCHLORIDE
     Dosage: 1 MG, 2X/DAY:BID
     Route: 048
  5. LITHIUM. [Concomitant]
     Active Substance: LITHIUM
     Dosage: 450 MG, 2X/DAY:BID
     Route: 048
  6. LITHIUM. [Concomitant]
     Active Substance: LITHIUM
     Dosage: 600 MG, 2X/DAY:BID
     Route: 048
  7. 503 (GUANFACINE HYDROCHLORIDE) [Suspect]
     Active Substance: GUANFACINE HYDROCHLORIDE
     Dosage: 1 MG, 1X/DAY:QD
     Route: 048
  8. LITHIUM. [Concomitant]
     Active Substance: LITHIUM
     Dosage: 300 MG, 2X/DAY:BID
     Route: 048
  9. ARIPRAZOLE [Concomitant]
     Active Substance: ARIPIPRAZOLE
     Dosage: 2 MG, 1X/DAY:QD
     Route: 048
  10. LITHIUM. [Concomitant]
     Active Substance: LITHIUM
     Indication: MOOD SWINGS
     Dosage: 450 MG, 2X/DAY:BID
     Route: 048
  11. 503 (GUANFACINE HYDROCHLORIDE) [Suspect]
     Active Substance: GUANFACINE HYDROCHLORIDE
     Indication: PRODUCT USED FOR UNKNOWN INDICATION
     Dosage: 2 MG, 2X/DAY:BID (TITRATED)
     Route: 048

REACTIONS (11)
  - Weight increased [Unknown]
  - Mania [Recovered/Resolved]
  - Unevaluable event [Unknown]
  - Dyspnoea [Recovered/Resolved]
  - Palpitations [Unknown]
  - Aggression [Recovered/Resolved]
  - Dysphoria [Recovered/Resolved]
  - Atrioventricular block first degree [Recovering/Resolving]
  - Hallucination, auditory [Recovered/Resolved]
  - Anxiety [Unknown]
  - Inappropriate schedule of drug administration [Not Recovered/Not Resolved]
